FAERS Safety Report 15554482 (Version 1)
Quarter: 2018Q4

REPORT INFORMATION
  Report Type: Spontaneous
  Country: US (occurrence: US)
  Receive Date: 20181022
  Receipt Date: 20181022
  Transmission Date: 20190205
  Serious: No
  Sender: FDA-Public Use
  Company Number: None

PATIENT
  Age: 40 Year
  Sex: Female

DRUGS (1)
  1. STELARA [Suspect]
     Active Substance: USTEKINUMAB
     Indication: PSORIASIS
     Dosage: INJECT 45 MG SUBCUTANEOUSLY AT WEEK 4, THEN  EVERY 12WEEKS  AS DIRECTED
     Route: 058
     Dates: start: 201712

REACTIONS (1)
  - Mammoplasty [None]
